FAERS Safety Report 6127757-6 (Version None)
Quarter: 2009Q1

REPORT INFORMATION
  Report Type: 
  Country: None (occurrence: None)
  Receive Date: 20090319
  Receipt Date: 20090319
  Transmission Date: 20090719
  Serious: No
  Sender: FDA-Public Use
  Company Number: None

PATIENT
  Age: 61 Year
  Sex: Male

DRUGS (1)
  1. PRAMLINTIDE [Suspect]
     Dosage: 15 MG ONCE SQ
     Route: 058
     Dates: start: 20090105, end: 20090202

REACTIONS (2)
  - NAUSEA [None]
  - VOMITING [None]
